FAERS Safety Report 12857457 (Version 1)
Quarter: 2016Q4

REPORT INFORMATION
  Report Type: Spontaneous
  Country: US (occurrence: US)
  Receive Date: 20161018
  Receipt Date: 20161018
  Transmission Date: 20170207
  Serious: No
  Sender: FDA-Public Use
  Company Number: GXBR2016US002048

PATIENT
  Sex: Female

DRUGS (2)
  1. METHYLPREDNISOLONE TABLETS USP [Suspect]
     Active Substance: METHYLPREDNISOLONE
     Indication: PROPHYLAXIS
     Dosage: 4 MG, (6 TABS ON DAY 1, DECREASING BY 1 TABLET A DAY UNTILL FINISHEDT PER DAY UNTIL FINISHED)
     Route: 048
     Dates: start: 20160527, end: 20160601
  2. METROGEL [Concomitant]
     Active Substance: METRONIDAZOLE
     Indication: ROSACEA
     Dosage: UNK DF, UNK
     Route: 061

REACTIONS (2)
  - Palpitations [Recovering/Resolving]
  - Hypertension [Recovering/Resolving]

NARRATIVE: CASE EVENT DATE: 20160531
